FAERS Safety Report 24141640 (Version 1)
Quarter: 2024Q3

REPORT INFORMATION
  Report Type: Report from Study
  Country: US (occurrence: US)
  Receive Date: 20240726
  Receipt Date: 20240726
  Transmission Date: 20241017
  Serious: Yes (Other)
  Sender: BAYER
  Company Number: US-BAYER-2024A103699

PATIENT
  Age: 68 Year
  Sex: Male

DRUGS (1)
  1. NUBEQA [Suspect]
     Active Substance: DAROLUTAMIDE
     Indication: Hormone-refractory prostate cancer
     Dosage: 600 MG, BID
     Dates: start: 20221031

REACTIONS (6)
  - Neuropathy peripheral [Recovering/Resolving]
  - Hot flush [Recovering/Resolving]
  - Balance disorder [Recovering/Resolving]
  - Arthropathy [Recovering/Resolving]
  - Fatigue [Recovering/Resolving]
  - Faeces soft [Recovering/Resolving]
